FAERS Safety Report 7045513-1 (Version None)
Quarter: 2010Q4

REPORT INFORMATION
  Report Type: 
  Country: None (occurrence: None)
  Receive Date: 20101014
  Receipt Date: 20101007
  Transmission Date: 20110411
  Serious: Yes (Hospitalization)
  Sender: FDA-Public Use
  Company Number: FR-ROCHE-709879

PATIENT
  Sex: Female

DRUGS (8)
  1. BONIVA [Suspect]
     Indication: OSTEOPOROSIS
     Route: 048
     Dates: start: 20071101, end: 20100601
  2. AVLOCARDYL [Suspect]
     Dosage: 0.5 TABLET
     Route: 048
     Dates: start: 20060101
  3. CORTANCYL [Concomitant]
     Dates: start: 20091201
  4. MONOCRIXO [Concomitant]
     Dates: end: 20090101
  5. BROMAZEPAM [Concomitant]
     Dosage: HALF TABLET DAILY
     Dates: start: 19850101
  6. STILNOX [Concomitant]
  7. SEROPLEX [Concomitant]
     Dates: start: 20091201
  8. VITAMIN D3 [Concomitant]

REACTIONS (5)
  - FACIAL NEURALGIA [None]
  - GLARE [None]
  - OEDEMA [None]
  - OPTIC NERVE DISORDER [None]
  - VISUAL ACUITY REDUCED [None]
